FAERS Safety Report 7796323-9 (Version None)
Quarter: 2011Q4

REPORT INFORMATION
  Report Type: 
  Country: None (occurrence: None)
  Receive Date: 20111005
  Receipt Date: 20110928
  Transmission Date: 20120403
  Serious: Yes (Other)
  Sender: FDA-Public Use
  Company Number: US-BIOGENIDEC-2011BI030726

PATIENT
  Sex: Female

DRUGS (2)
  1. TYSABRI [Suspect]
     Indication: MULTIPLE SCLEROSIS
     Route: 042
     Dates: start: 20090615
  2. AVONEX [Concomitant]
     Indication: MULTIPLE SCLEROSIS
     Route: 030

REACTIONS (6)
  - ANKLE FRACTURE [None]
  - BACK PAIN [None]
  - OPTIC NEURITIS [None]
  - CONVULSION [None]
  - EYE OPERATION [None]
  - INTERVERTEBRAL DISC PROTRUSION [None]
